FAERS Safety Report 5756632-1 (Version None)
Quarter: 2008Q2

REPORT INFORMATION
  Report Type: 
  Country: None (occurrence: None)
  Receive Date: 20080603
  Receipt Date: 20080526
  Transmission Date: 20081010
  Serious: Yes (Hospitalization, Other)
  Sender: FDA-Public Use
  Company Number: FR-BRISTOL-MYERS SQUIBB COMPANY-14212740

PATIENT
  Age: 61 Year
  Sex: Male

DRUGS (6)
  1. GLUCOPHAGE [Suspect]
     Indication: TYPE 2 DIABETES MELLITUS
     Route: 048
     Dates: start: 20060101
  2. GLUCOR [Concomitant]
     Indication: TYPE 2 DIABETES MELLITUS
     Dosage: GLUCOR TABLET.
     Route: 048
     Dates: start: 20030101
  3. ZESTRIL [Concomitant]
     Indication: HYPERTENSION
     Dosage: ZESTRIL 5 MG TABLET.
     Route: 048
     Dates: start: 20030101
  4. LASILIX [Concomitant]
     Indication: CARDIAC FAILURE
     Dosage: LASILIX TABLET.
     Route: 048
     Dates: start: 20030101
  5. CRESTOR [Concomitant]
     Indication: HYPERCHOLESTEROLAEMIA
     Dosage: CRESTOR TABLET.
     Route: 048
     Dates: start: 20040101
  6. ASPIRIN [Concomitant]
     Indication: THROMBOSIS PROPHYLAXIS
     Dosage: KARDEGIC TABLET.
     Route: 048
     Dates: start: 20060101

REACTIONS (2)
  - OVERDOSE [None]
  - RENAL FAILURE ACUTE [None]
